FAERS Safety Report 8958629 (Version 1)
Quarter: 2012Q4

REPORT INFORMATION
  Report Type: Spontaneous
  Country: US (occurrence: None)
  Receive Date: 20121206
  Receipt Date: 20121206
  Transmission Date: 20130627
  Serious: No
  Sender: FDA-Public Use
  Company Number: None

PATIENT
  Sex: Male

DRUGS (1)
  1. HERBS (UNSPECIFIED INGREDIENT) [Suspect]

REACTIONS (6)
  - Swelling face [None]
  - Local swelling [None]
  - Auricular swelling [None]
  - Purulence [None]
  - Pain [None]
  - Paradoxical drug reaction [None]
